FAERS Safety Report 6815100-6 (Version None)
Quarter: 2010Q3

REPORT INFORMATION
  Report Type: 
  Country: None (occurrence: None)
  Receive Date: 20100702
  Receipt Date: 20100624
  Transmission Date: 20110219
  Serious: Yes (Other)
  Sender: FDA-Public Use
  Company Number: US-AMGEN-QUU408915

PATIENT
  Sex: Male

DRUGS (5)
  1. SENSIPAR [Suspect]
     Indication: HYPERPARATHYROIDISM SECONDARY
     Dates: start: 20080101, end: 20090501
  2. HECTORAL [Concomitant]
  3. PHOSLO [Concomitant]
     Dates: start: 20080101, end: 20100401
  4. FOSRENOL [Concomitant]
     Dates: start: 20080101, end: 20090101
  5. RENAGEL [Concomitant]
     Dates: start: 20080101

REACTIONS (3)
  - BLOOD PARATHYROID HORMONE DECREASED [None]
  - CONVULSION [None]
  - HYPERCALCAEMIA [None]
